FAERS Safety Report 6111912-5 (Version None)
Quarter: 2009Q1

REPORT INFORMATION
  Report Type: 
  Country: None (occurrence: None)
  Receive Date: 20090311
  Receipt Date: 20090302
  Transmission Date: 20090719
  Serious: Yes (Other)
  Sender: FDA-Public Use
  Company Number: GB-SANOFI-SYNTHELABO-A01200902193

PATIENT
  Sex: Male

DRUGS (3)
  1. CANNABIS [Suspect]
     Indication: DRUG USE FOR UNKNOWN INDICATION
     Dosage: UNK
     Route: 065
  2. VALIUM [Suspect]
     Indication: DRUG USE FOR UNKNOWN INDICATION
     Dosage: UNK
     Route: 065
  3. ZOLPIDEM [Suspect]
     Indication: DRUG USE FOR UNKNOWN INDICATION
     Dosage: 15-20 TABLETS A DAY
     Route: 048

REACTIONS (3)
  - DISSOCIATIVE DISORDER [None]
  - INTENTIONAL OVERDOSE [None]
  - POST VIRAL FATIGUE SYNDROME [None]
